FAERS Safety Report 4673879-6 (Version None)
Quarter: 2005Q2

REPORT INFORMATION
  Report Type: 
  Country: None (occurrence: None)
  Receive Date: 20050525
  Receipt Date: 20050516
  Transmission Date: 20051028
  Serious: Yes (Life-Threatening, Hospitalization, Disabling)
  Sender: FDA-Public Use
  Company Number: US-MERCK-0505USA01888

PATIENT
  Age: 79 Year
  Sex: Female

DRUGS (9)
  1. ZOCOR [Suspect]
     Indication: BLOOD CHOLESTEROL INCREASED
     Route: 048
     Dates: start: 20040701, end: 20050512
  2. TYLENOL (CAPLET) [Concomitant]
     Route: 065
  3. SEREVENT [Concomitant]
     Route: 065
  4. COMBIVENT [Concomitant]
     Route: 065
  5. FLOVENT [Concomitant]
     Route: 065
  6. PROTONIX [Concomitant]
     Route: 065
  7. DIGOXIN [Concomitant]
     Route: 065
  8. COUMADIN [Concomitant]
     Route: 065
  9. DILTIAZEM HYDROCHLORIDE [Concomitant]
     Route: 065

REACTIONS (4)
  - ASTHENIA [None]
  - MOBILITY DECREASED [None]
  - MYALGIA [None]
  - WEIGHT DECREASED [None]
